FAERS Safety Report 11722576 (Version 3)
Quarter: 2016Q4

REPORT INFORMATION
  Report Type: Spontaneous
  Country: US (occurrence: US)
  Receive Date: 20151111
  Receipt Date: 20161214
  Transmission Date: 20170206
  Serious: No
  Sender: FDA-Public Use
  Company Number: US-APOTEX-2015AP013081

PATIENT
  Sex: Male

DRUGS (9)
  1. FENTANYL TRANSDERMAL SYSTEM [Suspect]
     Active Substance: FENTANYL
     Indication: PRODUCT USED FOR UNKNOWN INDICATION
     Dosage: 1 PATCH EVERY 72 HOURS (75MCG)
     Route: 062
  2. FENTANYL TRANSDERMAL SYSTEM [Suspect]
     Active Substance: FENTANYL
     Dosage: 1 PATCH EVERY 72 HOURS (100MCG)
     Route: 062
  3. FENTANYL TRANSDERMAL SYSTEM [Suspect]
     Active Substance: FENTANYL
     Dosage: 1 PATCH EVERY 72 HOURS
     Route: 062
  4. FENTANYL TRANSDERMAL SYSTEM [Suspect]
     Active Substance: FENTANYL
     Dosage: 1 PATCH EVERY 72 HOURS
     Route: 062
  5. FENTANYL TRANSDERMAL SYSTEM [Suspect]
     Active Substance: FENTANYL
     Dosage: 1 PATCH EVERY 72 HOURS (100MCG)
     Route: 062
  6. FENTANYL TRANSDERMAL SYSTEM [Suspect]
     Active Substance: FENTANYL
     Dosage: 1 PATCH EVERY 72 HOURS
     Route: 062
  7. FENTANYL TRANSDERMAL SYSTEM [Suspect]
     Active Substance: FENTANYL
     Dosage: 1 PATCH EVERY 72 HOURS
     Route: 062
  8. FENTANYL TRANSDERMAL SYSTEM [Suspect]
     Active Substance: FENTANYL
     Dosage: 1 PATCH EVERY 72 HOURS
     Route: 062
  9. FENTANYL TRANSDERMAL SYSTEM [Suspect]
     Active Substance: FENTANYL
     Dosage: 1 PATCH EVERY 72 HOURS (100MCG)
     Route: 062

REACTIONS (4)
  - Withdrawal syndrome [Not Recovered/Not Resolved]
  - Product substitution issue [Not Recovered/Not Resolved]
  - Product adhesion issue [Not Recovered/Not Resolved]
  - Pain [Not Recovered/Not Resolved]
